FAERS Safety Report 10019571 (Version 3)
Quarter: 2014Q3

REPORT INFORMATION
  Report Type: Spontaneous
  Country: US (occurrence: US)
  Receive Date: 20140318
  Receipt Date: 20140721
  Transmission Date: 20150326
  Serious: Yes (Other)
  Sender: FDA-Public Use
  Company Number: US-ELI_LILLY_AND_COMPANY-US201403003306

PATIENT
  Age: 22 Year
  Sex: Male
  Weight: 67.57 kg

DRUGS (1)
  1. HUMALOG [Suspect]
     Active Substance: INSULIN LISPRO
     Indication: PRODUCT USED FOR UNKNOWN INDICATION
     Dosage: UNK
     Route: 058

REACTIONS (6)
  - Glycosylated haemoglobin increased [Unknown]
  - Blood ketone body [Unknown]
  - Pollakiuria [Unknown]
  - Blood glucose increased [Recovered/Resolved]
  - Thirst [Unknown]
  - Myalgia [Unknown]

NARRATIVE: CASE EVENT DATE: 20140307
